FAERS Safety Report 21681736 (Version 3)
Quarter: 2023Q1

REPORT INFORMATION
  Report Type: Report from Study
  Country: US (occurrence: US)
  Receive Date: 20221205
  Receipt Date: 20230103
  Transmission Date: 20230418
  Serious: Yes (Other)
  Sender: FDA-Public Use
  Company Number: US-ABBVIE-4223216

PATIENT
  Age: 76 Year
  Sex: Male

DRUGS (1)
  1. RINVOQ [Suspect]
     Active Substance: UPADACITINIB
     Indication: Rheumatoid arthritis
     Route: 048
     Dates: start: 20211118

REACTIONS (14)
  - Neoplasm prostate [Not Recovered/Not Resolved]
  - Neuropathy peripheral [Not Recovered/Not Resolved]
  - Hypotension [Unknown]
  - Musculoskeletal chest pain [Unknown]
  - Chronic kidney disease [Recovering/Resolving]
  - Pain in extremity [Unknown]
  - Arthralgia [Not Recovered/Not Resolved]
  - Pancreatic cyst [Recovering/Resolving]
  - Musculoskeletal pain [Unknown]
  - Pain [Not Recovered/Not Resolved]
  - Hernia [Recovering/Resolving]
  - Fatigue [Not Recovered/Not Resolved]
  - Musculoskeletal discomfort [Unknown]
  - Fear [Unknown]

NARRATIVE: CASE EVENT DATE: 20221201
